FAERS Safety Report 14432858 (Version 3)
Quarter: 2018Q4

REPORT INFORMATION
  Report Type: Spontaneous
  Country: DE (occurrence: DE)
  Receive Date: 20180124
  Receipt Date: 20181101
  Transmission Date: 20190204
  Serious: Yes (Hospitalization)
  Sender: FDA-Public Use
  Company Number: PHHY2018DE009470

PATIENT
  Age: 8 Day
  Sex: Male
  Weight: 3.31 kg

DRUGS (2)
  1. L-THYROX [Concomitant]
     Active Substance: LEVOTHYROXINE SODIUM
     Indication: FOETAL EXPOSURE DURING PREGNANCY
     Dosage: MOTHER DOSE: 25 MCG, QD
     Route: 064
     Dates: start: 201701, end: 201712
  2. ACICLOVIR 1A PHARMA [Suspect]
     Active Substance: ACYCLOVIR
     Indication: FOETAL EXPOSURE DURING PREGNANCY
     Dosage: MATERNAL DOSE: 800 MG, 5 TIMES DAILY
     Route: 064
     Dates: start: 20171010, end: 20181017

REACTIONS (10)
  - Diarrhoea [Recovered/Resolved]
  - Milk allergy [Unknown]
  - Mucosal haemorrhage [Recovered/Resolved]
  - Haematochezia [Recovered/Resolved]
  - Foetal exposure during pregnancy [Recovered/Resolved]
  - Crohn^s disease [Unknown]
  - Faecal calprotectin increased [Unknown]
  - Intestinal haemorrhage [Recovered/Resolved]
  - Exposure via breast milk [Unknown]
  - Inflammatory marker increased [Unknown]

NARRATIVE: CASE EVENT DATE: 20171107
